FAERS Safety Report 7774489-4 (Version None)
Quarter: 2011Q3

REPORT INFORMATION
  Report Type: 
  Country: None (occurrence: None)
  Receive Date: 20110923
  Receipt Date: 20110914
  Transmission Date: 20111222
  Serious: Yes (Death)
  Sender: FDA-Public Use
  Company Number: US-ROCHE-797093

PATIENT
  Sex: Female
  Weight: 56.7 kg

DRUGS (1)
  1. HERCEPTIN [Suspect]
     Dosage: FREQUENCY WEEKLY
     Route: 042
     Dates: start: 20110524, end: 20110629

REACTIONS (2)
  - DYSPNOEA [None]
  - ABDOMINAL PAIN [None]
